FAERS Safety Report 5312505-X (Version None)
Quarter: 2007Q2

REPORT INFORMATION
  Report Type: 
  Country: None (occurrence: None)
  Receive Date: 20070430
  Receipt Date: 20061116
  Transmission Date: 20071010
  Serious: No
  Sender: FDA-Public Use
  Company Number: 2006UW24397

PATIENT
  Sex: Female

DRUGS (6)
  1. NEXIUM [Suspect]
     Route: 048
  2. CRESTOR [Suspect]
     Route: 048
  3. PREMARIN [Suspect]
  4. METFORMIN HCL [Suspect]
  5. ZETIA [Suspect]
  6. ESTRATEST [Suspect]
     Dosage: 1 DOSAGE FORM DAILY
     Route: 048

REACTIONS (2)
  - GINGIVAL PAIN [None]
  - GINGIVITIS [None]
